FAERS Safety Report 15407792 (Version 1)
Quarter: 2018Q4

REPORT INFORMATION
  Report Type: Spontaneous
  Country: IN (occurrence: IN)
  Receive Date: 20180920
  Receipt Date: 20180920
  Transmission Date: 20190204
  Serious: Yes (Other)
  Sender: FDA-Public Use
  Company Number: IN-PFIZER INC-2018351388

PATIENT
  Age: 28 Year
  Sex: Female

DRUGS (1)
  1. ETHINYLESTRADIOL/LEVONORGESTREL [Suspect]
     Active Substance: ETHINYL ESTRADIOL\LEVONORGESTREL
     Indication: CONTRACEPTION
     Dosage: 1 DF, DAILY (ONE TABLET EACH DAY FOR 21 DAYS,AND NONE FOR THE NEXT SEVEN, A PERIOD OF ONE YEAR)
     Route: 048

REACTIONS (2)
  - Gingival swelling [Recovered/Resolved]
  - Gingival bleeding [Recovered/Resolved]
